FAERS Safety Report 24576041 (Version 1)
Quarter: 2024Q4

REPORT INFORMATION
  Report Type: Spontaneous
  Country: US (occurrence: None)
  Receive Date: 20241102
  Receipt Date: 20241102
  Transmission Date: 20250115
  Serious: Yes (Disabling, Other)
  Sender: Public
  Company Number: None

PATIENT
  Age: 55 Year
  Sex: Female
  Weight: 63 kg

DRUGS (1)
  1. LAGEVRIO [Suspect]
     Active Substance: MOLNUPIRAVIR
     Indication: COVID-19
     Dosage: 4 CAPSULE TWICE A DAY ORAL
     Route: 048

REACTIONS (4)
  - Gastric ulcer [None]
  - Constipation [None]
  - Gastrooesophageal reflux disease [None]
  - Abdominal distension [None]

NARRATIVE: CASE EVENT DATE: 20231227
